FAERS Safety Report 4735471-4 (Version None)
Quarter: 2005Q3

REPORT INFORMATION
  Report Type: 
  Country: None (occurrence: None)
  Receive Date: 20050805
  Receipt Date: 20050725
  Transmission Date: 20060218
  Serious: Yes (Hospitalization)
  Sender: FDA-Public Use
  Company Number: 2005AP04036

PATIENT
  Age: 70 Year
  Sex: Female

DRUGS (11)
  1. ATACAND [Suspect]
     Indication: ESSENTIAL HYPERTENSION
     Route: 048
     Dates: end: 20040510
  2. LITHIUM CARBONATE [Suspect]
     Indication: AFFECTIVE DISORDER
     Route: 048
     Dates: end: 20040510
  3. LITHIUM CARBONATE [Suspect]
     Route: 048
     Dates: start: 20040517
  4. CELEBREX [Suspect]
     Route: 048
     Dates: end: 20040510
  5. ASPIRIN [Concomitant]
     Indication: MYOCARDIAL ISCHAEMIA
  6. HYDROXOCOBALAMIN [Concomitant]
  7. TEGRETOL [Concomitant]
     Indication: AFFECTIVE DISORDER
  8. SERTRALINE HYDROCHLORIDE [Concomitant]
     Indication: AFFECTIVE DISORDER
  9. ZOCOR [Concomitant]
     Indication: METABOLIC DISORDER
  10. GLYCERYL TRINITRATE [Concomitant]
     Indication: MYOCARDIAL ISCHAEMIA
  11. AZOPT [Concomitant]
     Indication: GLAUCOMA
     Route: 047

REACTIONS (6)
  - DRUG INTERACTION [None]
  - DYSARTHRIA [None]
  - DYSKINESIA [None]
  - HYPERTONIA [None]
  - MUSCLE RIGIDITY [None]
  - THERAPEUTIC AGENT TOXICITY [None]
